FAERS Safety Report 23720071 (Version 1)
Quarter: 2024Q2

REPORT INFORMATION
  Report Type: Spontaneous
  Country: CA (occurrence: CA)
  Receive Date: 20240408
  Receipt Date: 20240408
  Transmission Date: 20240715
  Serious: Yes (Hospitalization)
  Sender: FDA-Public Use
  Company Number: CA-TEVA-VS-3178895

PATIENT
  Age: 55 Year
  Sex: Male
  Weight: 74.843 kg

DRUGS (1)
  1. NAPROXEN [Suspect]
     Active Substance: NAPROXEN
     Indication: Pain management
     Dosage: TABLET (ENTERIC COATED)
     Route: 048

REACTIONS (2)
  - Small intestinal perforation [Recovered/Resolved]
  - Enterorrhaphy [Recovered/Resolved]
